FAERS Safety Report 4381519-9 (Version None)
Quarter: 2004Q2

REPORT INFORMATION
  Report Type: 
  Country: None (occurrence: None)
  Receive Date: 20040621
  Receipt Date: 20040506
  Transmission Date: 20050107
  Serious: Yes (Hospitalization)
  Sender: FDA-Public Use
  Company Number: JP-GLAXOSMITHKLINE-B0332080A

PATIENT
  Age: 30 Year
  Sex: Male
  Weight: 80 kg

DRUGS (7)
  1. ZEFIX [Suspect]
     Indication: ANTIVIRAL PROPHYLAXIS
     Dosage: 100MG PER DAY
     Route: 048
     Dates: start: 20030821, end: 20040429
  2. TAKEPRON [Suspect]
     Dosage: 30MG PER DAY
     Route: 048
     Dates: start: 20031011, end: 20040429
  3. GASTER [Concomitant]
     Indication: ULCER
     Dosage: 40MG PER DAY
     Route: 048
     Dates: start: 20030821, end: 20030904
  4. ZANTAC [Concomitant]
     Indication: ULCER
     Dosage: 300MG PER DAY
     Route: 048
     Dates: start: 20030929, end: 20031011
  5. PREDONINE [Concomitant]
     Route: 042
     Dates: start: 20030821, end: 20030904
  6. PREDONINE [Concomitant]
     Dosage: 80MG WEEKLY
     Route: 042
     Dates: start: 20030930, end: 20031010
  7. PREDNISOLONE [Concomitant]
     Route: 048
     Dates: start: 20030905

REACTIONS (3)
  - CYTOMEGALOVIRUS INFECTION [None]
  - HISTIOCYTOSIS HAEMATOPHAGIC [None]
  - NEUTROPENIA [None]
